FAERS Safety Report 6436559-2 (Version None)
Quarter: 2009Q4

REPORT INFORMATION
  Report Type: 
  Country: None (occurrence: None)
  Receive Date: 20091111
  Receipt Date: 20091110
  Transmission Date: 20100525
  Serious: Yes (Other)
  Sender: FDA-Public Use
  Company Number: CA-ALLERGAN-0910558US

PATIENT
  Age: 8 Year
  Sex: Female

DRUGS (4)
  1. BOTOX [Suspect]
     Indication: CEREBRAL PALSY
     Dosage: 300 UNITS, SINGLE
     Route: 030
     Dates: start: 20090601, end: 20090601
  2. BOTOX [Suspect]
     Dosage: 300 UNITS, EVERY 6 MONTHS
     Route: 030
     Dates: start: 20050101
  3. SEPTRA [Concomitant]
     Indication: URINARY TRACT INFECTION
  4. BACLOFEN [Concomitant]
     Route: 037

REACTIONS (5)
  - COUGH [None]
  - EYELID PTOSIS [None]
  - MUSCULAR WEAKNESS [None]
  - PHARYNGITIS STREPTOCOCCAL [None]
  - PYREXIA [None]
